FAERS Safety Report 18044589 (Version 1)
Quarter: 2020Q3

REPORT INFORMATION
  Report Type: Spontaneous
  Country: US (occurrence: US)
  Receive Date: 20200720
  Receipt Date: 20200720
  Transmission Date: 20201103
  Serious: Yes (Hospitalization)
  Sender: FDA-Public Use
  Company Number: None

PATIENT
  Age: 85 Year
  Sex: Female

DRUGS (3)
  1. CEFTRIAXONE 10 GM IV (00781?3210?46) [Suspect]
     Active Substance: CEFTRIAXONE
     Dates: start: 20200609, end: 20200627
  2. AMPICILLIN [Suspect]
     Active Substance: AMPICILLIN
     Dosage: ?          OTHER FREQUENCY:CONTINUOUS;?
     Route: 041
     Dates: start: 20200609, end: 20200627
  3. AMPICILLIN [Suspect]
     Active Substance: AMPICILLIN
     Dosage: ?          OTHER FREQUENCY:CONTINUOUS;?
     Route: 041
     Dates: start: 20200609, end: 20200627

REACTIONS (3)
  - Nausea [None]
  - Rash [None]
  - Decreased appetite [None]

NARRATIVE: CASE EVENT DATE: 20200625
